FAERS Safety Report 16429813 (Version 1)
Quarter: 2019Q2

REPORT INFORMATION
  Report Type: Report from Study
  Country: US (occurrence: US)
  Receive Date: 20190614
  Receipt Date: 20190614
  Transmission Date: 20190711
  Serious: No
  Sender: FDA-Public Use
  Company Number: PHEH2019US024424

PATIENT
  Sex: Male

DRUGS (1)
  1. TAFINLAR [Suspect]
     Active Substance: DABRAFENIB MESYLATE
     Indication: PRODUCT USED FOR UNKNOWN INDICATION
     Route: 065

REACTIONS (7)
  - Vomiting [Recovering/Resolving]
  - Productive cough [Recovering/Resolving]
  - Chills [Recovering/Resolving]
  - Cough [Recovering/Resolving]
  - Pyrexia [Recovering/Resolving]
  - Dyspnoea [Recovering/Resolving]
  - Urinary incontinence [Recovering/Resolving]
